FAERS Safety Report 9882060 (Version 2)
Quarter: 2014Q2

REPORT INFORMATION
  Report Type: Spontaneous
  Country: IT (occurrence: IT)
  Receive Date: 20140207
  Receipt Date: 20140410
  Transmission Date: 20141212
  Serious: Yes (Hospitalization)
  Sender: FDA-Public Use
  Company Number: IT-SA-2014SA012482

PATIENT
  Age: 77 Year
  Sex: Female
  Weight: 72 kg

DRUGS (3)
  1. CLEXANE [Suspect]
     Indication: PROPHYLAXIS
     Route: 058
     Dates: start: 20131231, end: 20140106
  2. BISOPROLOL HEMIFUMARATE [Concomitant]
     Route: 048
  3. POTASSIUM [Concomitant]
     Route: 048

REACTIONS (3)
  - Gastric ulcer [Recovering/Resolving]
  - Anaemia [Recovering/Resolving]
  - Melaena [Recovering/Resolving]
